FAERS Safety Report 13057967 (Version 1)
Quarter: 2016Q4

REPORT INFORMATION
  Report Type: Spontaneous
  Country: US (occurrence: US)
  Receive Date: 20161223
  Receipt Date: 20161223
  Transmission Date: 20170207
  Serious: No
  Sender: FDA-Public Use
  Company Number: US-BAXTER-2016BAX062012

PATIENT

DRUGS (1)
  1. 5% DEXTROSE AND 0.9% SODIUM CHLORIDE INJECTION [Suspect]
     Active Substance: DEXTROSE\SODIUM CHLORIDE
     Indication: MEDICATION DILUTION
     Dosage: INFUSION
     Route: 065

REACTIONS (4)
  - Nausea [Unknown]
  - Multimorbidity [Unknown]
  - Rash [Unknown]
  - Vomiting [Unknown]
